FAERS Safety Report 6726651-7 (Version None)
Quarter: 2010Q2

REPORT INFORMATION
  Report Type: 
  Country: None (occurrence: None)
  Receive Date: 20100514
  Receipt Date: 20100505
  Transmission Date: 20101027
  Serious: Yes (Hospitalization, Other)
  Sender: FDA-Public Use
  Company Number: CA-ABBOTT-10P-028-0630514-00

PATIENT
  Sex: Female
  Weight: 53.572 kg

DRUGS (1)
  1. HUMIRA [Suspect]
     Indication: PSORIATIC ARTHROPATHY
     Route: 058
     Dates: start: 20080110

REACTIONS (21)
  - ABDOMINAL PAIN UPPER [None]
  - ANAL FISTULA [None]
  - DIARRHOEA [None]
  - FREQUENT BOWEL MOVEMENTS [None]
  - HYPOAESTHESIA [None]
  - INSOMNIA [None]
  - LOCAL SWELLING [None]
  - MALAISE [None]
  - PAIN [None]
  - PAIN IN EXTREMITY [None]
  - PAINFUL RESPIRATION [None]
  - PLEURITIC PAIN [None]
  - PORTAL VEIN THROMBOSIS [None]
  - POST PROCEDURAL HAEMORRHAGE [None]
  - POST PROCEDURAL INFECTION [None]
  - RECTAL ABSCESS [None]
  - TENDONITIS [None]
  - UTERINE NEOPLASM [None]
  - VITAMIN B12 DECREASED [None]
  - VOMITING [None]
  - WEIGHT DECREASED [None]
